FAERS Safety Report 8461187-7 (Version None)
Quarter: 2012Q2

REPORT INFORMATION
  Report Type: 
  Country: None (occurrence: None)
  Receive Date: 20120625
  Receipt Date: 20120622
  Transmission Date: 20120825
  Serious: No
  Sender: FDA-Public Use
  Company Number: US-PFIZER INC-2012151099

PATIENT
  Sex: Male
  Weight: 58.5 kg

DRUGS (2)
  1. MORPHINE [Concomitant]
     Indication: CANCER PAIN
     Dosage: 20MG SIXTEEN TIMES A DAY OR AS NEEDED
  2. CHANTIX [Suspect]
     Indication: SMOKING CESSATION THERAPY
     Dosage: 0.5 MG, DAILY
     Route: 048
     Dates: start: 20120611

REACTIONS (1)
  - VOMITING [None]
